FAERS Safety Report 5699759-5 (Version None)
Quarter: 2008Q2

REPORT INFORMATION
  Report Type: 
  Country: None (occurrence: None)
  Receive Date: 20080408
  Receipt Date: 20080408
  Transmission Date: 20081010
  Serious: Yes (Life-Threatening)
  Sender: FDA-Public Use
  Company Number: None

PATIENT
  Sex: Male
  Weight: 89 kg

DRUGS (1)
  1. CALCITRIOL [Suspect]
     Indication: HYPERPARATHYROIDISM
     Dosage: 0.5 MCG  Q DAY  PO
     Route: 048
     Dates: start: 20080401, end: 20080401

REACTIONS (1)
  - ANAPHYLACTIC REACTION [None]
